FAERS Safety Report 16020936 (Version 1)
Quarter: 2019Q1

REPORT INFORMATION
  Report Type: Spontaneous
  Country: US (occurrence: US)
  Receive Date: 20190228
  Receipt Date: 20190228
  Transmission Date: 20190418
  Serious: Yes (Disabling)
  Sender: FDA-Public Use
  Company Number: None

PATIENT
  Age: 28 Year
  Sex: Female
  Weight: 101.25 kg

DRUGS (1)
  1. CIPRO [Suspect]
     Active Substance: CIPROFLOXACIN HYDROCHLORIDE
     Indication: STAPHYLOCOCCAL INFECTION

REACTIONS (4)
  - Tendon disorder [None]
  - Panic attack [None]
  - Anxiety [None]
  - Autoimmune disorder [None]

NARRATIVE: CASE EVENT DATE: 20110201
